FAERS Safety Report 17903649 (Version 1)
Quarter: 2020Q2

REPORT INFORMATION
  Report Type: Spontaneous
  Country: CN (occurrence: CN)
  Receive Date: 20200617
  Receipt Date: 20200617
  Transmission Date: 20200714
  Serious: Yes (Other)
  Sender: FDA-Public Use
  Company Number: CN-ROCHE-2619539

PATIENT
  Age: 63 Year
  Sex: Male
  Weight: 69 kg

DRUGS (6)
  1. PACLITAXEL ALBUMIN [Suspect]
     Active Substance: PACLITAXEL
     Indication: LARYNGEAL CANCER
     Route: 041
     Dates: start: 20200515
  2. CISPLATIN. [Suspect]
     Active Substance: CISPLATIN
     Indication: LARYNGEAL CANCER
     Route: 041
     Dates: start: 20200516
  3. SODIUM CHLORIDE 0.9% [Concomitant]
     Active Substance: SODIUM CHLORIDE
     Dosage: WITH CISPLATIN
     Route: 041
     Dates: start: 20200516
  4. PERJETA [Suspect]
     Active Substance: PERTUZUMAB
     Indication: LARYNGEAL CANCER
     Route: 041
     Dates: start: 20200515
  5. SODIUM CHLORIDE 0.9% [Concomitant]
     Active Substance: SODIUM CHLORIDE
     Dosage: WITH PERTUZUMAB
     Route: 041
     Dates: start: 20200515
  6. SODIUM CHLORIDE 0.9% [Concomitant]
     Active Substance: SODIUM CHLORIDE
     Dosage: WITH PACLITAXEL ALBUMIN BOUND
     Route: 041
     Dates: start: 20200515

REACTIONS (4)
  - Gastrointestinal disorder [Recovering/Resolving]
  - Rash papular [Recovering/Resolving]
  - Intentional product use issue [Unknown]
  - Off label use [Unknown]

NARRATIVE: CASE EVENT DATE: 20200515
